FAERS Safety Report 6165550-9 (Version None)
Quarter: 2009Q2

REPORT INFORMATION
  Report Type: 
  Country: None (occurrence: None)
  Receive Date: 20090423
  Receipt Date: 20090416
  Transmission Date: 20091009
  Serious: Yes (Other)
  Sender: FDA-Public Use
  Company Number: PHHY2009ES08546

PATIENT
  Age: 71 Year
  Sex: Male

DRUGS (2)
  1. GLEEVEC [Suspect]
     Indication: CHRONIC MYELOID LEUKAEMIA
     Dosage: UNK
     Dates: start: 20030102, end: 20090210
  2. CHOP [Suspect]
     Dosage: 3 CICLES

REACTIONS (5)
  - DRUG INTERACTION [None]
  - LYMPHOMA [None]
  - MALAISE [None]
  - NON-HODGKIN'S LYMPHOMA [None]
  - PANCYTOPENIA [None]
